FAERS Safety Report 17681788 (Version 1)
Quarter: 2020Q2

REPORT INFORMATION
  Report Type: Report from Study
  Country: ES (occurrence: ES)
  Receive Date: 20200417
  Receipt Date: 20200417
  Transmission Date: 20200714
  Serious: Yes (Death)
  Sender: FDA-Public Use
  Company Number: ES-EXELIXIS-CABO-20028758

PATIENT
  Age: 70 Year
  Sex: Male
  Weight: 61.5 kg

DRUGS (7)
  1. SIMVASTATINA [Concomitant]
     Active Substance: SIMVASTATIN
  2. SEPTRIN BALSAMICO [Concomitant]
  3. DAFIRO [Concomitant]
     Active Substance: AMLODIPINE\VALSARTAN
  4. METHYLPREDNISOLONE. [Concomitant]
     Active Substance: METHYLPREDNISOLONE
  5. ALFUZOSINA AUROBINDO [Concomitant]
  6. CABOMETYX [Suspect]
     Active Substance: CABOZANTINIB S-MALATE
     Indication: RENAL CELL CARCINOMA
     Dosage: 40 MG, QD
     Route: 048
     Dates: start: 20200312
  7. DEXCHLORPHENIRAMINE [Concomitant]
     Active Substance: DEXCHLORPHENIRAMINE

REACTIONS (1)
  - Sudden death [Fatal]

NARRATIVE: CASE EVENT DATE: 20200408
